FAERS Safety Report 8368984-7 (Version None)
Quarter: 2012Q2

REPORT INFORMATION
  Report Type: 
  Country: None (occurrence: None)
  Receive Date: 20120518
  Receipt Date: 20120515
  Transmission Date: 20120825
  Serious: No
  Sender: FDA-Public Use
  Company Number: US-PFIZER INC-2012098502

PATIENT
  Sex: Female
  Weight: 50.794 kg

DRUGS (1)
  1. CHANTIX [Suspect]
     Indication: SMOKING CESSATION THERAPY
     Dosage: SPLITTING THE 1MG TABLET INTO HALF, UNK
     Route: 048
     Dates: start: 20120330, end: 20120405

REACTIONS (2)
  - TREMOR [None]
  - NAUSEA [None]
